FAERS Safety Report 6106726-6 (Version None)
Quarter: 2009Q1

REPORT INFORMATION
  Report Type: 
  Country: None (occurrence: None)
  Receive Date: 20090302
  Receipt Date: 20090225
  Transmission Date: 20090719
  Serious: Yes (Hospitalization)
  Sender: FDA-Public Use
  Company Number: GXKR2009DE02321

PATIENT
  Age: 68 Year
  Sex: Male
  Weight: 93 kg

DRUGS (9)
  1. BISOPROLOL                          (BISOPROLOL) FILM-COATED TABLET [Suspect]
     Indication: HYPERTENSION
     Dosage: 2.5 MG, QD. ORAL
     Route: 048
     Dates: end: 20080328
  2. DISALUNIL             (HYDROCHLORITHIAZIDE) TABLET [Suspect]
     Indication: HYPERTENSION
     Dosage: 25 MG, QD, ORAL
     Route: 048
  3. ROXITHROMYCIN                   (ROXITHROMYCIN) TABLET [Suspect]
     Indication: RESPIRATORY TRACT INFECTION
     Dosage: 300 MG, QD, ORAL
     Route: 048
     Dates: start: 20080325, end: 20080328
  4. ZOCOR [Concomitant]
  5. PANTOPRAZOLE SODIUM [Concomitant]
  6. NORVASC      /GRC/ (AMLODIPINE) [Concomitant]
  7. ALLOPURINOL [Concomitant]
  8. ACETYLSALICYLIC ACID SRT [Concomitant]
  9. ALDACTONE [Concomitant]

REACTIONS (5)
  - BRADYCARDIA [None]
  - DEHYDRATION [None]
  - DRUG INTERACTION [None]
  - NAUSEA [None]
  - VOMITING [None]
